FAERS Safety Report 15662268 (Version 1)
Quarter: 2018Q4

REPORT INFORMATION
  Report Type: Spontaneous
  Country: US (occurrence: US)
  Receive Date: 20181127
  Receipt Date: 20181127
  Transmission Date: 20190205
  Serious: No
  Sender: FDA-Public Use
  Company Number: US-PFIZER INC-2016314357

PATIENT
  Sex: Male

DRUGS (2)
  1. GABAPENTIN. [Suspect]
     Active Substance: GABAPENTIN
     Dosage: UNK, 1X/DAY (ONCE DAILY)
  2. GRALISE [Suspect]
     Active Substance: GABAPENTIN
     Dosage: UNK, 1X/DAY

REACTIONS (1)
  - Drug hypersensitivity [Unknown]
